FAERS Safety Report 6891580-5 (Version None)
Quarter: 2010Q3

REPORT INFORMATION
  Report Type: 
  Country: None (occurrence: None)
  Receive Date: 20100731
  Receipt Date: 20070802
  Transmission Date: 20110219
  Serious: No
  Sender: FDA-Public Use
  Company Number: US-PFIZER INC-2007064663

PATIENT
  Sex: Female

DRUGS (3)
  1. DEPO-MEDROL [Suspect]
     Indication: ARTHRALGIA
     Route: 050
     Dates: start: 20070725
  2. CORTICOSTEROID NOS [Suspect]
     Indication: ARTHRALGIA
     Route: 050
     Dates: start: 20070725
  3. DRUG USED IN DIABETES [Concomitant]

REACTIONS (1)
  - BLOOD GLUCOSE INCREASED [None]
